FAERS Safety Report 5144112-6 (Version None)
Quarter: 2006Q4

REPORT INFORMATION
  Report Type: 
  Country: None (occurrence: None)
  Receive Date: 20061106
  Receipt Date: 20060920
  Transmission Date: 20070319
  Serious: Yes (Hospitalization)
  Sender: FDA-Public Use
  Company Number: PHBS2006JP14705

PATIENT
  Age: 29 Year
  Sex: Male

DRUGS (8)
  1. SANDIMMUNE [Suspect]
     Indication: RENAL TRANSPLANT
     Route: 042
  2. NEORAL [Suspect]
     Indication: RENAL TRANSPLANT
     Dosage: 8 MG/KG/D
     Route: 048
     Dates: start: 20051014
  3. SIMULECT [Suspect]
     Indication: RENAL TRANSPLANT
     Dosage: 20 MG, ONCE/SINGLE
     Route: 042
     Dates: start: 20051014, end: 20051014
  4. SIMULECT [Suspect]
     Dosage: 20 MG, ONCE/SINGLE
     Route: 042
     Dates: start: 20051018, end: 20051018
  5. ENDOXAN [Suspect]
     Indication: RENAL TRANSPLANT
     Dosage: 200 MG/D
     Route: 048
     Dates: start: 20051004, end: 20051201
  6. PREDNISOLONE [Concomitant]
     Indication: RENAL TRANSPLANT
     Route: 065
  7. BREDININ [Suspect]
     Indication: RENAL TRANSPLANT
     Dosage: 4 MG/KG/D
     Route: 048
     Dates: start: 20051201, end: 20051201
  8. SULFAMETHOXAZOLE + TRIMETHOPRIM [Concomitant]

REACTIONS (10)
  - ALANINE AMINOTRANSFERASE INCREASED [None]
  - BLOOD CREATININE INCREASED [None]
  - DRUG LEVEL DECREASED [None]
  - HAEMODIALYSIS [None]
  - HEPATIC FUNCTION ABNORMAL [None]
  - HEPATITIS [None]
  - KIDNEY TRANSPLANT REJECTION [None]
  - OLIGURIA [None]
  - RENAL TUBULAR NECROSIS [None]
  - SURGERY [None]
